FAERS Safety Report 25598600 (Version 2)
Quarter: 2025Q4

REPORT INFORMATION
  Report Type: Report from Study
  Country: CA (occurrence: CA)
  Receive Date: 20250723
  Receipt Date: 20251211
  Transmission Date: 20260118
  Serious: Yes (Other)
  Sender: CELLTRION
  Company Number: CA-CELLTRION INC.-2025CA024175

PATIENT

DRUGS (2)
  1. ADALIMUMAB-AATY [Suspect]
     Active Substance: ADALIMUMAB-AATY
     Indication: Hidradenitis
     Dosage: MAINTENANCE, 80 MG, EVERY 7 DAYS/ 80 MILLIGRAM, 1 EVERY 1 WEEK
     Route: 058
     Dates: start: 20231129
  2. ADALIMUMAB-AATY [Suspect]
     Active Substance: ADALIMUMAB-AATY

REACTIONS (2)
  - Surgery [Recovering/Resolving]
  - Intentional product use issue [Recovering/Resolving]
